FAERS Safety Report 10086127 (Version 1)
Quarter: 2014Q2

REPORT INFORMATION
  Report Type: Spontaneous
  Country: FR (occurrence: None)
  Receive Date: 20140415
  Receipt Date: 20140415
  Transmission Date: 20141212
  Serious: Yes (Hospitalization, Other)
  Sender: FDA-Public Use
  Company Number: 08-AUR-03819

PATIENT
  Age: 47 Year
  Sex: Female

DRUGS (2)
  1. ONDANSETRON [Suspect]
     Indication: NAUSEA
     Route: 042
  2. CYCLOPHOSPHAMIDE (CYCLOPHOSPHAMIDE) [Concomitant]

REACTIONS (7)
  - Infusion related reaction [None]
  - Blood pressure increased [None]
  - Ventricular hypokinesia [None]
  - Ejection fraction decreased [None]
  - Pericardial effusion [None]
  - Myocardial ischaemia [None]
  - Arteriospasm coronary [None]
